FAERS Safety Report 6364676-4 (Version None)
Quarter: 2009Q3

REPORT INFORMATION
  Report Type: 
  Country: None (occurrence: None)
  Receive Date: 20090919
  Receipt Date: 20090821
  Transmission Date: 20100115
  Serious: No
  Sender: FDA-Public Use
  Company Number: US-ABBOTT-09P-163-0588081-00

PATIENT
  Sex: Male
  Weight: 86.26 kg

DRUGS (2)
  1. HUMIRA [Suspect]
     Indication: CROHN'S DISEASE
     Route: 058
     Dates: start: 20070101, end: 20090501
  2. HUMIRA [Suspect]
     Indication: RHEUMATOID ARTHRITIS

REACTIONS (11)
  - EYE SWELLING [None]
  - FISTULA [None]
  - GAIT DISTURBANCE [None]
  - JOINT SWELLING [None]
  - MOBILITY DECREASED [None]
  - OCULAR HYPERAEMIA [None]
  - OPEN WOUND [None]
  - RHEUMATOID ARTHRITIS [None]
  - SKIN LESION [None]
  - STAPHYLOCOCCAL INFECTION [None]
  - UVEITIS [None]
